FAERS Safety Report 19427375 (Version 8)
Quarter: 2021Q3

REPORT INFORMATION
  Report Type: Report from Study
  Country: CN (occurrence: CN)
  Receive Date: 20210616
  Receipt Date: 20210825
  Transmission Date: 20211014
  Serious: Yes (Hospitalization)
  Sender: FDA-Public Use
  Company Number: CN-ROCHE-2848450

PATIENT
  Age: 57 Year
  Sex: Male
  Weight: 75 kg

DRUGS (24)
  1. CISPLATIN. [Suspect]
     Active Substance: CISPLATIN
     Indication: SMALL CELL LUNG CANCER EXTENSIVE STAGE
     Dosage: 75 MG/M2 FROM DAY 1 OF EACH 21?DAY CYCLE, LIQUID?MOST RECENT DOSE OF CISPLATIN PRIOR TO SAE: 21/MAY/
     Route: 042
     Dates: start: 20210423
  2. SODIUM BICARBONATE. [Concomitant]
     Active Substance: SODIUM BICARBONATE
     Dates: start: 20210425, end: 20210703
  3. DI YU SHENG BAI PIAN [Concomitant]
     Dates: start: 20210624, end: 20210701
  4. ATEZOLIZUMAB. [Suspect]
     Active Substance: ATEZOLIZUMAB
     Indication: SMALL CELL LUNG CANCER EXTENSIVE STAGE
     Dosage: DAY 1 OF EACH 21?DAY CYCLE, LIQUID?MOST RECENT DOSE OF ATEZOLIZUMAB PRIOR TO SAE: 21/MAY/2021, 16/JU
     Route: 041
     Dates: start: 20210423
  5. METFORMIN HYDROCHLORIDE. [Concomitant]
     Active Substance: METFORMIN HYDROCHLORIDE
     Dates: start: 2019
  6. SODIUM CHLORIDE. [Concomitant]
     Active Substance: SODIUM CHLORIDE
     Dates: start: 20210617, end: 20210619
  7. GLUCOSE [Concomitant]
     Active Substance: DEXTROSE
     Dates: start: 20210616, end: 20210616
  8. ETOPOSIDE. [Suspect]
     Active Substance: ETOPOSIDE
     Dosage: FROM DAY 1 TO DAY 3, EVERY 3 WEEKS (21 DAYS CYCLE)
     Route: 042
     Dates: start: 20210519
  9. COBALT [Concomitant]
     Active Substance: COBALT
     Dates: start: 20210609, end: 20210619
  10. TROPISETRON HYDROCHLORIDE [Concomitant]
     Active Substance: TROPISETRON HYDROCHLORIDE
     Dates: start: 20190616, end: 20210619
  11. AMLODIPINE BESYLATE. [Concomitant]
     Active Substance: AMLODIPINE BESYLATE
     Dates: start: 20210618, end: 20210622
  12. INTERLEUKINS [Concomitant]
     Active Substance: INTERLEUKIN NOS
     Dates: start: 20210706, end: 20210711
  13. LEUCOGEN [Concomitant]
     Active Substance: LEUCOGEN
     Dates: start: 20210624, end: 20210701
  14. CISPLATIN. [Suspect]
     Active Substance: CISPLATIN
     Dosage: 40 MG DAY1?2, 50 MG DAY3
     Route: 042
     Dates: start: 20210519
  15. METOCLOPRAMIDE HYDROCHLORIDE. [Concomitant]
     Active Substance: METOCLOPRAMIDE HYDROCHLORIDE
     Dates: start: 20210616, end: 20210619
  16. ZOLEDRONIC ACID [Concomitant]
     Active Substance: ZOLEDRONIC ACID
     Dates: start: 20210619, end: 20210619
  17. ATORVASTATIN CALCIUM. [Concomitant]
     Active Substance: ATORVASTATIN CALCIUM
     Dates: start: 20210609, end: 20210620
  18. MIGLITOL. [Concomitant]
     Active Substance: MIGLITOL
     Route: 048
     Dates: start: 202103
  19. CIMETIDINE [Concomitant]
     Active Substance: CIMETIDINE
     Dates: start: 20210616, end: 20210619
  20. MONTMORILLONITE [Concomitant]
     Active Substance: MONTMORILLONITE
     Dates: start: 20210618, end: 20210618
  21. GRANULOCYTE STIMULATING FACTOR INJECTION (UNK INGREDIENTS) [Concomitant]
     Dates: start: 20210705, end: 20210705
  22. ETOPOSIDE. [Suspect]
     Active Substance: ETOPOSIDE
     Indication: SMALL CELL LUNG CANCER EXTENSIVE STAGE
     Dosage: 100 MG/M2 FROM DAY 1 TO DAY 3 OF EACH 21?DAY CYCLE, LIQUID?MOST RECENT DOSE ETOPOSIDE PRIOR TO SAE:
     Route: 042
     Dates: start: 20210423
  23. LIQUORICE [Concomitant]
     Active Substance: LICORICE
     Route: 048
     Dates: start: 20210524, end: 20210701
  24. SODIUM CHLORIDE. [Concomitant]
     Active Substance: SODIUM CHLORIDE
     Dates: start: 20210616, end: 20210616

REACTIONS (2)
  - Thrombocytopenia [Recovered/Resolved]
  - Troponin T increased [Not Recovered/Not Resolved]

NARRATIVE: CASE EVENT DATE: 20210611
